FAERS Safety Report 5402001-3 (Version None)
Quarter: 2007Q3

REPORT INFORMATION
  Report Type: 
  Country: None (occurrence: None)
  Receive Date: 20070727
  Receipt Date: 20070717
  Transmission Date: 20080115
  Serious: Yes (Hospitalization)
  Sender: FDA-Public Use
  Company Number: E2090-00276-SPO-JP

PATIENT
  Sex: Female

DRUGS (2)
  1. ZONISAMIDE [Suspect]
     Indication: CONVULSION
     Dosage: 150 MG, ORAL
     Route: 048
  2. UNSPECIFIED ANTIBIOTICS (ANTIBIOTICS) [Concomitant]

REACTIONS (4)
  - MENINGITIS [None]
  - PNEUMONIA ASPIRATION [None]
  - RASH [None]
  - SWELLING [None]
